FAERS Safety Report 7275358-9 (Version None)
Quarter: 2011Q1

REPORT INFORMATION
  Report Type: 
  Country: None (occurrence: None)
  Receive Date: 20110204
  Receipt Date: 20110124
  Transmission Date: 20110831
  Serious: Yes (Disabling, Other)
  Sender: FDA-Public Use
  Company Number: US-ELI_LILLY_AND_COMPANY-US201012005812

PATIENT
  Sex: Male

DRUGS (7)
  1. PROZAC [Suspect]
     Dosage: 20 MG, 2/D
  2. CRESTOR [Concomitant]
  3. XANAX [Concomitant]
  4. PROZAC [Suspect]
     Indication: DEPRESSION
     Dosage: 20 MG, DAILY (1/D)
     Dates: start: 19860101
  5. AVAPRO [Concomitant]
  6. HYDROCHLORIC ACID [Concomitant]
  7. OMEPRAZOLE [Concomitant]

REACTIONS (6)
  - ARTHROPATHY [None]
  - ARTHRALGIA [None]
  - EMOTIONAL DISORDER [None]
  - BACK DISORDER [None]
  - SCIATICA [None]
  - ROTATOR CUFF SYNDROME [None]
